FAERS Safety Report 19040720 (Version 1)
Quarter: 2021Q1

REPORT INFORMATION
  Report Type: Spontaneous
  Country: US (occurrence: US)
  Receive Date: 20210322
  Receipt Date: 20210322
  Transmission Date: 20210420
  Serious: No
  Sender: FDA-Public Use
  Company Number: US-009507513-2103USA001408

PATIENT
  Sex: Female

DRUGS (1)
  1. INTRON A [Suspect]
     Active Substance: INTERFERON ALFA-2B
     Indication: CUTANEOUS T-CELL LYMPHOMA
     Dosage: 3 MILLION UNITS (0.5 ML) MONDAY, WEDNESDAY, AND FRIDAY
     Route: 058
     Dates: start: 20180111

REACTIONS (1)
  - Fatigue [Not Recovered/Not Resolved]
